FAERS Safety Report 21461170 (Version 2)
Quarter: 2022Q4

REPORT INFORMATION
  Report Type: Report from Study
  Country: US (occurrence: US)
  Receive Date: 20221015
  Receipt Date: 20221220
  Transmission Date: 20230112
  Serious: No
  Sender: FDA-Public Use
  Company Number: US-ABBVIE-22K-163-4416079-00

PATIENT
  Age: 61 Year
  Sex: Female

DRUGS (3)
  1. HUMIRA [Suspect]
     Active Substance: ADALIMUMAB
     Indication: Colitis ulcerative
     Dosage: STRENGTH: 40MG
     Route: 058
     Dates: start: 202111
  2. HUMIRA [Suspect]
     Active Substance: ADALIMUMAB
     Indication: Psoriatic arthropathy
     Dosage: STRENGTH: 40MG
     Route: 058
     Dates: start: 20211109
  3. HUMIRA [Suspect]
     Active Substance: ADALIMUMAB
     Dosage: STRENGTH: 40MG
     Route: 058
     Dates: start: 202111

REACTIONS (10)
  - Grip strength decreased [Not Recovered/Not Resolved]
  - Rash [Recovering/Resolving]
  - COVID-19 [Recovered/Resolved]
  - Loss of personal independence in daily activities [Not Recovered/Not Resolved]
  - Pain in extremity [Unknown]
  - Post procedural infection [Unknown]
  - Protein total increased [Unknown]
  - Pustular psoriasis [Recovering/Resolving]
  - C-reactive protein increased [Unknown]
  - Musculoskeletal stiffness [Unknown]

NARRATIVE: CASE EVENT DATE: 20220801
